FAERS Safety Report 15427962 (Version 1)
Quarter: 2018Q3

REPORT INFORMATION
  Report Type: Spontaneous
  Country: US (occurrence: US)
  Receive Date: 20180926
  Receipt Date: 20180926
  Transmission Date: 20181010
  Serious: No
  Sender: FDA-Public Use
  Company Number: US-GLENMARK PHARMACEUTICALS-2018GMK036886

PATIENT

DRUGS (1)
  1. CLOBETASOL PROPIONATE OINTMENT USP, 0.05% [Suspect]
     Active Substance: CLOBETASOL PROPIONATE
     Indication: KELOID SCAR
     Dosage: TWICE A DAY, SOMETIMES 3 TIMES A DAY
     Route: 065
     Dates: end: 20180726

REACTIONS (7)
  - Disease progression [Not Recovered/Not Resolved]
  - Intentional product misuse [Unknown]
  - Pruritus [Not Recovered/Not Resolved]
  - Drug effective for unapproved indication [Unknown]
  - Keloid scar [Not Recovered/Not Resolved]
  - Skin burning sensation [Not Recovered/Not Resolved]
  - Insurance issue [Unknown]
